FAERS Safety Report 10327330 (Version 3)
Quarter: 2014Q3

REPORT INFORMATION
  Report Type: Report from Study
  Country: NL (occurrence: NL)
  Receive Date: 20140721
  Receipt Date: 20140917
  Transmission Date: 20150326
  Serious: Yes (Hospitalization)
  Sender: FDA-Public Use
  Company Number: NL-ROCHE-1369499

PATIENT
  Age: 66 Year
  Sex: Male

DRUGS (3)
  1. CISPLATIN. [Suspect]
     Active Substance: CISPLATIN
     Indication: GASTRIC CANCER
     Dosage: CUMULATIVE DOSE IS 330 MG
     Route: 042
     Dates: start: 20140116, end: 20140306
  2. CAPECITABINE [Suspect]
     Active Substance: CAPECITABINE
     Indication: GASTRIC CANCER
     Dosage: CUMMULATIVE DOSE IS 151200 MG
     Route: 048
     Dates: start: 20140116, end: 20140318
  3. EPIRUBICIN [Suspect]
     Active Substance: EPIRUBICIN
     Indication: GASTRIC CANCER
     Dosage: CUMULATIVE DOSE IS 285MG
     Route: 042
     Dates: start: 20140116, end: 20140306

REACTIONS (3)
  - Diarrhoea [Recovered/Resolved]
  - Vomiting [Unknown]
  - Febrile neutropenia [Recovered/Resolved]

NARRATIVE: CASE EVENT DATE: 20140318
